FAERS Safety Report 17264525 (Version 3)
Quarter: 2022Q1

REPORT INFORMATION
  Report Type: Spontaneous
  Country: US (occurrence: US)
  Receive Date: 20200113
  Receipt Date: 20220211
  Transmission Date: 20220423
  Serious: No
  Sender: FDA-Public Use
  Company Number: US-SA-2020SA003652

PATIENT
  Age: 20 Year
  Sex: Female

DRUGS (1)
  1. DUPIXENT [Suspect]
     Active Substance: DUPILUMAB
     Indication: Dermatitis atopic
     Dosage: 300 MG, QOW
     Route: 058
     Dates: start: 201807

REACTIONS (8)
  - Stomatitis [Unknown]
  - Eye swelling [Unknown]
  - Rash erythematous [Unknown]
  - Hordeolum [Unknown]
  - Erythema of eyelid [Unknown]
  - Periorbital swelling [Unknown]
  - Eye irritation [Unknown]
  - Eye pruritus [Recovered/Resolved]
